FAERS Safety Report 4730787-X (Version None)
Quarter: 2005Q3

REPORT INFORMATION
  Report Type: 
  Country: None (occurrence: None)
  Receive Date: 20050725
  Receipt Date: 20050511
  Transmission Date: 20060218
  Serious: No
  Sender: FDA-Public Use
  Company Number: USA050597898

PATIENT
  Sex: Male
  Weight: 91 kg

DRUGS (2)
  1. STRATTERA [Suspect]
     Indication: DISTURBANCE IN ATTENTION
     Dosage: 60 MG DAY
     Dates: start: 20050201
  2. ANTACID TAB [Concomitant]

REACTIONS (8)
  - ANOREXIA [None]
  - ANXIETY [None]
  - BRONCHITIS [None]
  - DISTRACTIBILITY [None]
  - ERECTILE DYSFUNCTION [None]
  - HEART RATE INCREASED [None]
  - INSOMNIA [None]
  - PARAESTHESIA [None]
